FAERS Safety Report 6317975-6 (Version None)
Quarter: 2009Q3

REPORT INFORMATION
  Report Type: 
  Country: None (occurrence: None)
  Receive Date: 20090821
  Receipt Date: 20090812
  Transmission Date: 20100115
  Serious: Yes (Other)
  Sender: FDA-Public Use
  Company Number: SE-PFIZER INC-2009253393

PATIENT
  Age: 64 Year

DRUGS (2)
  1. PREDNISOLONE [Suspect]
     Indication: RHEUMATOID ARTHRITIS
     Dosage: 5 MG, UNK
     Route: 048
     Dates: start: 20090223, end: 20090224
  2. METHOTREXAT ^MEDAC^ [Concomitant]
     Dosage: UNK MG/ML, UNK

REACTIONS (1)
  - SKIN BURNING SENSATION [None]
